FAERS Safety Report 25724464 (Version 2)
Quarter: 2025Q3

REPORT INFORMATION
  Report Type: Spontaneous
  Country: EU (occurrence: EU)
  Receive Date: 20250826
  Receipt Date: 20250911
  Transmission Date: 20251020
  Serious: Yes (Hospitalization)
  Sender: TEVA
  Company Number: EU-TEVA-VS-3364916

PATIENT
  Age: 75 Year
  Sex: Female

DRUGS (1)
  1. OLMESARTAN [Suspect]
     Active Substance: OLMESARTAN
     Indication: Hypertension
     Route: 065

REACTIONS (6)
  - Acute kidney injury [Unknown]
  - Hypotension [Unknown]
  - Hypokalaemia [Unknown]
  - Dehydration [Unknown]
  - Hypomagnesaemia [Unknown]
  - Sprue-like enteropathy [Recovered/Resolved]
